FAERS Safety Report 19722776 (Version 1)
Quarter: 2021Q3

REPORT INFORMATION
  Report Type: Spontaneous
  Country: NL (occurrence: NL)
  Receive Date: 20210819
  Receipt Date: 20210819
  Transmission Date: 20211014
  Serious: Yes (Other)
  Sender: FDA-Public Use
  Company Number: NL-TEVA-2021-NL-1942546

PATIENT
  Age: 65 Year
  Sex: Female
  Weight: 57 kg

DRUGS (1)
  1. OMEPRAZOL CAPSULE MSR 20MG / OMEPRAZOL TEVA CAPSULE MSR 20MG (OMEPRAZOLE) [Suspect]
     Active Substance: OMEPRAZOLE
     Indication: REGURGITATION
     Dosage: THERAPY END DATE :ASKU
     Dates: start: 20210619

REACTIONS (5)
  - Syncope [Not Recovered/Not Resolved]
  - Therapeutic response unexpected [Unknown]
  - Dyspepsia [Not Recovered/Not Resolved]
  - Muscular weakness [Not Recovered/Not Resolved]
  - Decreased appetite [Not Recovered/Not Resolved]

NARRATIVE: CASE EVENT DATE: 20210620
